FAERS Safety Report 20361063 (Version 1)
Quarter: 2022Q1

REPORT INFORMATION
  Report Type: Spontaneous
  Country: US (occurrence: None)
  Receive Date: 20220120
  Receipt Date: 20220120
  Transmission Date: 20220423
  Serious: Yes (Other)
  Sender: FDA-Public Use
  Company Number: None

PATIENT
  Age: 85 Year
  Sex: Female
  Weight: 59 kg

DRUGS (7)
  1. VEKLURY [Suspect]
     Active Substance: REMDESIVIR
     Indication: COVID-19
     Dosage: OTHER FREQUENCY : 200 X1, 100 X2;?
     Route: 041
     Dates: start: 20220112, end: 20220114
  2. ASPIRIN [Concomitant]
     Active Substance: ASPIRIN
     Dates: start: 20220112
  3. AZITHROMYCIN [Concomitant]
     Active Substance: AZITHROMYCIN
     Dates: start: 20220112, end: 20220116
  4. HEPARIN [Concomitant]
     Active Substance: HEPARIN SODIUM
     Dates: start: 20220112, end: 20220118
  5. PREDNISONE [Concomitant]
     Active Substance: PREDNISONE
     Dates: start: 20220112
  6. ACETAMINOPHEN [Concomitant]
     Active Substance: ACETAMINOPHEN
     Dates: start: 20220112
  7. MELATONIN [Concomitant]
     Active Substance: MELATONIN
     Dates: start: 20220112

REACTIONS (2)
  - Aspartate aminotransferase increased [None]
  - Alanine aminotransferase increased [None]

NARRATIVE: CASE EVENT DATE: 20220115
